FAERS Safety Report 6013847-5 (Version None)
Quarter: 2008Q4

REPORT INFORMATION
  Report Type: 
  Country: None (occurrence: None)
  Receive Date: 20081219
  Receipt Date: 20081211
  Transmission Date: 20090506
  Serious: Yes (Hospitalization)
  Sender: FDA-Public Use
  Company Number: US-KINGPHARMUSA00001-K200801396

PATIENT
  Sex: Male
  Weight: 62.585 kg

DRUGS (2)
  1. BICILLIN L-A [Suspect]
     Indication: SYPHILIS
     Dosage: UNK, 3 DOSES
     Route: 030
     Dates: start: 20071115, end: 20071201
  2. AZELASTINE HCL [Concomitant]
     Indication: ASTHMA
     Dosage: UNK

REACTIONS (20)
  - ABASIA [None]
  - ABDOMINAL PAIN [None]
  - ACCOMMODATION DISORDER [None]
  - APHASIA [None]
  - BRAIN OEDEMA [None]
  - CHEST PAIN [None]
  - COGNITIVE DISORDER [None]
  - DIZZINESS [None]
  - DYSPHEMIA [None]
  - DYSPNOEA [None]
  - FALL [None]
  - FEELING HOT [None]
  - GASTROOESOPHAGEAL REFLUX DISEASE [None]
  - GLIOSIS [None]
  - HYPOAESTHESIA [None]
  - INTRACRANIAL PRESSURE INCREASED [None]
  - LIBIDO DECREASED [None]
  - MUSCLE TWITCHING [None]
  - PARAESTHESIA [None]
  - TESTICULAR PAIN [None]
